FAERS Safety Report 11159316 (Version 1)
Quarter: 2015Q2

REPORT INFORMATION
  Report Type: Report from Study
  Country: JP (occurrence: JP)
  Receive Date: 20150603
  Receipt Date: 20150603
  Transmission Date: 20150821
  Serious: Yes (Death, Other)
  Sender: FDA-Public Use
  Company Number: JP-ALEXION-A201501938

PATIENT

DRUGS (19)
  1. CEFTAZIDIME. [Concomitant]
     Active Substance: CEFTAZIDIME
     Indication: PRODUCT USED FOR UNKNOWN INDICATION
     Dosage: 1.5 G, TID
     Route: 065
     Dates: start: 20150306, end: 20150317
  2. CARDENALIN [Concomitant]
     Active Substance: DOXAZOSIN MESYLATE
     Indication: HAEMOLYTIC URAEMIC SYNDROME
     Dosage: 0.3 MG, QD
     Route: 048
     Dates: start: 20141229
  3. PHENOBAL                           /00023201/ [Concomitant]
     Active Substance: PHENOBARBITAL
     Indication: SEIZURE
     Dosage: 35 MG, BID
     Route: 048
     Dates: start: 20150101
  4. SOLIRIS [Suspect]
     Active Substance: ECULIZUMAB
     Indication: HAEMOLYTIC URAEMIC SYNDROME
     Dosage: 600 MG, SINGLE
     Route: 042
     Dates: start: 20150319, end: 20150319
  5. CLAFORAN [Concomitant]
     Active Substance: CEFOTAXIME SODIUM
     Indication: PRODUCT USED FOR UNKNOWN INDICATION
     Dosage: 1000 MG, BID
     Route: 065
     Dates: start: 20150325, end: 20150330
  6. URALYT U                           /01675401/ [Concomitant]
     Active Substance: POTASSIUM CITRATE\TRISODIUM CITRATE DIHYDRATE
     Indication: RENAL FAILURE
     Dosage: 2 G, BID
     Route: 048
     Dates: start: 20140401
  7. NEORAL [Concomitant]
     Active Substance: CYCLOSPORINE
     Indication: CYTOKINE STORM
     Dosage: 20 MG, BID
     Route: 048
  8. NOVORAPID [Concomitant]
     Active Substance: INSULIN ASPART
     Indication: DIABETES MELLITUS
     Dosage: 0-9 UNIT, 5TH PER DAY
     Route: 058
     Dates: start: 20121010
  9. MICARDIS [Concomitant]
     Active Substance: TELMISARTAN
     Indication: HAEMOLYTIC URAEMIC SYNDROME
     Dosage: 8 MG, QD
     Route: 048
     Dates: start: 20140401
  10. ALINAMIN                           /00257802/ [Concomitant]
     Indication: PRODUCT USED FOR UNKNOWN INDICATION
     Dosage: 50 MG, BID
     Route: 048
     Dates: start: 20150209
  11. VENILON [Concomitant]
     Active Substance: HUMAN IMMUNOGLOBULIN G
     Indication: HYPOGAMMAGLOBULINAEMIA
     Dosage: 5 MG, QMONTH
     Route: 042
     Dates: start: 20140501
  12. PREDONINE [Concomitant]
     Active Substance: PREDNISOLONE\PREDNISOLONE ACETATE\PREDNISOLONE SODIUM SUCCINATE
     Indication: ASTHMA
  13. TRESIBA [Concomitant]
     Active Substance: INSULIN DEGLUDEC
     Indication: DIABETES MELLITUS
     Dosage: 1-5 UNIT, QD
     Route: 058
     Dates: start: 20141111
  14. BIOTIN [Concomitant]
     Active Substance: BIOTIN
     Indication: PRODUCT USED FOR UNKNOWN INDICATION
     Dosage: 1.25 G, BID
     Route: 048
     Dates: start: 20150309
  15. SEPAMIT [Concomitant]
     Indication: HAEMOLYTIC URAEMIC SYNDROME
     Dosage: 6 MG, TID
     Route: 048
     Dates: start: 20140401
  16. NEORAL [Concomitant]
     Active Substance: CYCLOSPORINE
     Indication: DERMATITIS ATOPIC
  17. PREDONINE [Concomitant]
     Active Substance: PREDNISOLONE\PREDNISOLONE ACETATE\PREDNISOLONE SODIUM SUCCINATE
     Indication: DERMATITIS ATOPIC
     Dosage: 10 MG, QD
     Route: 048
     Dates: start: 20140405
  18. L CARTIN FF [Concomitant]
     Indication: PRODUCT USED FOR UNKNOWN INDICATION
     Dosage: 100 MG, BID
     Route: 048
     Dates: start: 20150317
  19. VANCOMYCIN [Concomitant]
     Active Substance: VANCOMYCIN
     Indication: PRODUCT USED FOR UNKNOWN INDICATION
     Dosage: 150 MG, QD
     Route: 065
     Dates: start: 20150217, end: 20150318

REACTIONS (3)
  - Staphylococcal infection [Unknown]
  - Immunodeficiency [Fatal]
  - Staphylococcal infection [Unknown]

NARRATIVE: CASE EVENT DATE: 20150405
